FAERS Safety Report 6452992-7 (Version None)
Quarter: 2009Q4

REPORT INFORMATION
  Report Type: 
  Country: None (occurrence: None)
  Receive Date: 20091124
  Receipt Date: 20091109
  Transmission Date: 20100525
  Serious: Yes (Disabling)
  Sender: FDA-Public Use
  Company Number: FR-B.I. PHARMACEUTICALS,INC./RIDGEFIELD-2009-FF-00764FF

PATIENT
  Sex: Female
  Weight: 96 kg

DRUGS (3)
  1. SPIRIVA [Suspect]
     Dosage: 18 MCG
     Route: 055
     Dates: start: 20091029, end: 20091030
  2. SYMBICORT 400 [Concomitant]
  3. SINGULAIR [Concomitant]

REACTIONS (2)
  - APHONIA [None]
  - OROPHARYNGEAL PAIN [None]
